FAERS Safety Report 5653611-X (Version None)
Quarter: 2008Q1

REPORT INFORMATION
  Report Type: 
  Country: None (occurrence: None)
  Receive Date: 20080306
  Receipt Date: 20080225
  Transmission Date: 20080703
  Serious: Yes (Hospitalization)
  Sender: FDA-Public Use
  Company Number: FR-ROCHE-549940

PATIENT
  Age: 72 Year
  Sex: Female

DRUGS (6)
  1. INVIRASE [Suspect]
     Route: 048
     Dates: start: 20071218, end: 20080106
  2. NORVIR [Suspect]
     Route: 048
     Dates: start: 20071218, end: 20080106
  3. TRUVADA [Suspect]
     Route: 048
     Dates: start: 20071218, end: 20080102
  4. ISOPTINE LP [Concomitant]
  5. COTAREG [Concomitant]
     Dosage: STRENGTH: 160 MG/25MG. ONE DOSE PER DAY
     Dates: end: 20080108
  6. MOCLAMINE [Concomitant]

REACTIONS (9)
  - ANOREXIA [None]
  - ARTHRALGIA [None]
  - ASTHENIA [None]
  - BONE PAIN [None]
  - DYSGEUSIA [None]
  - PRURITUS [None]
  - RENAL FAILURE ACUTE [None]
  - URTICARIA [None]
  - VOMITING [None]
